FAERS Safety Report 5208191-X (Version None)
Quarter: 2007Q1

REPORT INFORMATION
  Report Type: 
  Country: None (occurrence: None)
  Receive Date: 20070115
  Receipt Date: 20070111
  Transmission Date: 20070707
  Serious: Yes (Hospitalization)
  Sender: FDA-Public Use
  Company Number: US-GLAXOSMITHKLINE-A0635354A

PATIENT
  Sex: Male

DRUGS (2)
  1. EPZICOM [Suspect]
     Indication: HIV INFECTION
     Dosage: 1TAB PER DAY
     Route: 048
     Dates: end: 20070110
  2. REYATAZ [Concomitant]

REACTIONS (6)
  - DRUG HYPERSENSITIVITY [None]
  - MUSCULAR WEAKNESS [None]
  - PLEURAL INFECTION [None]
  - PYREXIA [None]
  - SKIN INFLAMMATION [None]
  - WEIGHT DECREASED [None]
